FAERS Safety Report 5320212-2 (Version None)
Quarter: 2007Q2

REPORT INFORMATION
  Report Type: 
  Country: None (occurrence: None)
  Receive Date: 20070509
  Receipt Date: 20070504
  Transmission Date: 20071010
  Serious: Yes (Hospitalization)
  Sender: FDA-Public Use
  Company Number: A0650321A

PATIENT
  Age: 72 Year
  Sex: Male

DRUGS (7)
  1. AVODART [Suspect]
     Indication: BENIGN PROSTATIC HYPERPLASIA
     Dosage: .5MG PER DAY
     Route: 048
  2. LUNESTA [Suspect]
     Indication: INSOMNIA
     Dosage: 2MG AT NIGHT
     Route: 048
     Dates: start: 20061024, end: 20061125
  3. SHAMPOO [Suspect]
     Route: 061
  4. CENTRUM SILVER [Concomitant]
  5. ALEVE [Concomitant]
  6. POTASSIUM CHLORIDE [Concomitant]
  7. MAGNESIUM SULFATE [Concomitant]

REACTIONS (5)
  - DERMATITIS [None]
  - NEUTROPHILIA [None]
  - PSORIASIS [None]
  - RASH ERYTHEMATOUS [None]
  - RASH VESICULAR [None]
